FAERS Safety Report 4533030-X (Version None)
Quarter: 2004Q4

REPORT INFORMATION
  Report Type: 
  Country: None (occurrence: None)
  Receive Date: 20041206
  Receipt Date: 20040203
  Transmission Date: 20050328
  Serious: Yes (Hospitalization)
  Sender: FDA-Public Use
  Company Number: 04P-163-0246496-00

PATIENT
  Age: 26 Year
  Sex: Female

DRUGS (2)
  1. BIAXIN [Suspect]
     Indication: BRONCHITIS
     Dosage: 500 MG, 2 IN 1 D, PER ORAL
     Route: 048
     Dates: start: 20040102, end: 20040105
  2. OSELTAMIVIR [Concomitant]

REACTIONS (3)
  - PSYCHOTIC DISORDER [None]
  - SWOLLEN TONGUE [None]
  - WHITE BLOOD CELL COUNT INCREASED [None]
